FAERS Safety Report 6187202-1 (Version None)
Quarter: 2009Q2

REPORT INFORMATION
  Report Type: 
  Country: None (occurrence: None)
  Receive Date: 20090512
  Receipt Date: 20090502
  Transmission Date: 20091009
  Serious: Yes (Hospitalization, Other)
  Sender: FDA-Public Use
  Company Number: PHHY2009BR16945

PATIENT
  Sex: Female

DRUGS (9)
  1. DIOVAN [Suspect]
     Indication: HYPERTENSION
     Dosage: 1 TABLET A DAY
     Route: 048
     Dates: start: 20081101
  2. INDAPAMIDE [Concomitant]
  3. LORATADINE [Concomitant]
  4. AMLODIPINE [Concomitant]
  5. VASOACTIVE [Concomitant]
  6. INSULIN [Concomitant]
  7. ACETYLSALICYLIC ACID [Concomitant]
  8. FOLIFER [Concomitant]
     Indication: BLOOD IRON DECREASED
  9. VILORIC [Concomitant]

REACTIONS (4)
  - CAROTID ARTERY OCCLUSION [None]
  - GAIT DISTURBANCE [None]
  - SURGERY [None]
  - VISION BLURRED [None]
